FAERS Safety Report 12764139 (Version 2)
Quarter: 2016Q3

REPORT INFORMATION
  Report Type: Report from Study
  Country: US (occurrence: US)
  Receive Date: 20160920
  Receipt Date: 20160926
  Transmission Date: 20161109
  Serious: Yes (Hospitalization, Other)
  Sender: FDA-Public Use
  Company Number: US-GILEAD-2016-0229135

PATIENT
  Age: 46 Year
  Sex: Female

DRUGS (2)
  1. LACTULOSE. [Concomitant]
     Active Substance: LACTULOSE
     Route: 065
  2. LEDIPASVIR/SOFOSBUVIR [Suspect]
     Active Substance: LEDIPASVIR\SOFOSBUVIR
     Indication: HEPATITIS C
     Dosage: 1 DF, UNK
     Route: 048
     Dates: start: 20160809

REACTIONS (12)
  - Constipation [Unknown]
  - Urticaria [Unknown]
  - Irritable bowel syndrome [Unknown]
  - Facial pain [Unknown]
  - Fatigue [Unknown]
  - Dry mouth [Unknown]
  - Pain [Unknown]
  - Headache [Unknown]
  - Helicobacter infection [Unknown]
  - Hypoaesthesia [Unknown]
  - Paraesthesia [Unknown]
  - Mydriasis [Unknown]
